FAERS Safety Report 8364870-7 (Version None)
Quarter: 2012Q2

REPORT INFORMATION
  Report Type: 
  Country: None (occurrence: None)
  Receive Date: 20120516
  Receipt Date: 20120511
  Transmission Date: 20120825
  Serious: Yes (Other)
  Sender: FDA-Public Use
  Company Number: US-ROCHE-1017001

PATIENT
  Sex: Female
  Weight: 54.934 kg

DRUGS (5)
  1. ZYRTEC [Concomitant]
     Route: 048
  2. NASONEX [Concomitant]
     Indication: HYPERSENSITIVITY
     Route: 045
  3. ASPIRIN [Concomitant]
     Route: 048
  4. BONIVA [Suspect]
     Indication: OSTEOPENIA
     Route: 048
     Dates: start: 20070101
  5. ALLEGRA [Concomitant]
     Indication: HYPERSENSITIVITY
     Route: 048

REACTIONS (3)
  - SURGERY [None]
  - TOOTH DISORDER [None]
  - HIP SURGERY [None]
